FAERS Safety Report 11896506 (Version 1)
Quarter: 2016Q1

REPORT INFORMATION
  Report Type: Report from Study
  Country: CA (occurrence: CA)
  Receive Date: 20160107
  Receipt Date: 20160107
  Transmission Date: 20160526
  Serious: Yes (Hospitalization, Other)
  Sender: FDA-Public Use
  Company Number: CA-GILEAD-2015-0190739

PATIENT
  Age: 63 Year
  Sex: Male

DRUGS (2)
  1. LEDIPASVIR/SOFOSBUVIR [Suspect]
     Active Substance: LEDIPASVIR\SOFOSBUVIR
     Indication: CHRONIC HEPATITIS C
     Dosage: 90 MG, UNK
     Route: 048
     Dates: start: 20151115
  2. DILTIAZEM [Interacting]
     Active Substance: DILTIAZEM
     Indication: PRODUCT USED FOR UNKNOWN INDICATION
     Route: 065

REACTIONS (4)
  - Cellulitis [Unknown]
  - Diabetes mellitus inadequate control [Unknown]
  - Toe amputation [Unknown]
  - Drug interaction [Unknown]

NARRATIVE: CASE EVENT DATE: 201512
